FAERS Safety Report 12208044 (Version 1)
Quarter: 2016Q1

REPORT INFORMATION
  Report Type: Report from Study
  Country: US (occurrence: US)
  Receive Date: 20160324
  Receipt Date: 20160324
  Transmission Date: 20160526
  Serious: Yes (Other)
  Sender: FDA-Public Use
  Company Number: GXBR2016US001004

PATIENT
  Sex: Female

DRUGS (2)
  1. ORAL CONTRACEPTIVE NOS [Concomitant]
     Active Substance: UNSPECIFIED INGREDIENT
     Indication: CONTRACEPTION
     Dosage: UNK DF, UNK
     Route: 065
  2. GLATOPA [Suspect]
     Active Substance: GLATIRAMER ACETATE
     Indication: MULTIPLE SCLEROSIS
     Dosage: 20 MG, QD
     Route: 058
     Dates: start: 20151130, end: 20160320

REACTIONS (7)
  - Hypertension [Recovered/Resolved]
  - Injection site pain [Recovering/Resolving]
  - Injection site urticaria [Recovering/Resolving]
  - Injection site infection [Recovering/Resolving]
  - Injection site erythema [Recovering/Resolving]
  - Injection site inflammation [Recovering/Resolving]
  - Chest discomfort [Recovered/Resolved]
